FAERS Safety Report 20049472 (Version 1)
Quarter: 2021Q4

REPORT INFORMATION
  Report Type: Spontaneous
  Country: US (occurrence: None)
  Receive Date: 20211109
  Receipt Date: 20211109
  Transmission Date: 20220303
  Serious: Yes (Other)
  Sender: FDA-Public Use
  Company Number: None

PATIENT

DRUGS (2)
  1. LINZESS [Suspect]
     Active Substance: LINACLOTIDE
  2. MAGNESIUM CITRATE [Suspect]
     Active Substance: MAGNESIUM CITRATE

REACTIONS (1)
  - Drug ineffective [None]
